FAERS Safety Report 12847898 (Version 1)
Quarter: 2016Q4

REPORT INFORMATION
  Report Type: Spontaneous
  Country: US (occurrence: US)
  Receive Date: 20161014
  Receipt Date: 20161014
  Transmission Date: 20170207
  Serious: No
  Sender: FDA-Public Use
  Company Number: US-FRI-1000085645

PATIENT
  Sex: Female

DRUGS (2)
  1. VRAYLAR [Suspect]
     Active Substance: CARIPRAZINE
     Dosage: 1.5MG ON DAY ONE
     Route: 048
     Dates: start: 20160615, end: 20160615
  2. VRAYLAR [Suspect]
     Active Substance: CARIPRAZINE
     Dosage: 3MG
     Route: 048
     Dates: start: 20160616, end: 201606

REACTIONS (1)
  - Tremor [Unknown]

NARRATIVE: CASE EVENT DATE: 201606
